FAERS Safety Report 17415869 (Version 1)
Quarter: 2020Q1

REPORT INFORMATION
  Report Type: Spontaneous
  Country: US (occurrence: US)
  Receive Date: 20200130
  Receipt Date: 20200130
  Transmission Date: 20200409
  Serious: No
  Sender: FDA-Public Use
  Company Number: None

PATIENT
  Age: 66 Year
  Sex: Male

DRUGS (1)
  1. BUPRENORPHINE 8MG [Suspect]
     Active Substance: BUPRENORPHINE
     Route: 060
     Dates: start: 20200124

REACTIONS (1)
  - Burn oral cavity [None]

NARRATIVE: CASE EVENT DATE: 20200124
